FAERS Safety Report 13348942 (Version 1)
Quarter: 2017Q1

REPORT INFORMATION
  Report Type: Spontaneous
  Country: CH (occurrence: CH)
  Receive Date: 20170320
  Receipt Date: 20170320
  Transmission Date: 20170428
  Serious: Yes (Hospitalization)
  Sender: FDA-Public Use
  Company Number: CH-ORION CORPORATION ORION PHARMA-ENTC2017-0115

PATIENT
  Age: 85 Year
  Sex: Male

DRUGS (17)
  1. MADOPAR [Suspect]
     Active Substance: BENSERAZIDE HYDROCHLORIDE\LEVODOPA
     Route: 065
     Dates: start: 20161126, end: 20161128
  2. DAFALGAN [Concomitant]
     Active Substance: ACETAMINOPHEN
     Route: 065
     Dates: start: 20161202
  3. STALEVO [Suspect]
     Active Substance: CARBIDOPA\ENTACAPONE\LEVODOPA
     Dosage: STRENGTH: 150/37.5/200 MG
     Route: 065
     Dates: start: 20161126
  4. MARCOUMAR [Concomitant]
     Active Substance: PHENPROCOUMON
     Route: 065
  5. CLOPIN ECO [Suspect]
     Active Substance: CLOZAPINE
     Route: 065
     Dates: start: 20161205
  6. CLOPIN ECO [Suspect]
     Active Substance: CLOZAPINE
     Route: 065
     Dates: start: 20161202, end: 20161204
  7. MADOPAR [Suspect]
     Active Substance: BENSERAZIDE HYDROCHLORIDE\LEVODOPA
     Indication: PARKINSON^S DISEASE
     Route: 065
     Dates: end: 20161125
  8. REQUIP [Suspect]
     Active Substance: ROPINIROLE HYDROCHLORIDE
     Route: 065
  9. REMERON [Suspect]
     Active Substance: MIRTAZAPINE
     Route: 065
  10. MADOPAR [Suspect]
     Active Substance: BENSERAZIDE HYDROCHLORIDE\LEVODOPA
     Route: 065
     Dates: start: 20161129
  11. DUODART [Concomitant]
     Active Substance: DUTASTERIDE\TAMSULOSIN
     Route: 065
  12. DUROGESIC [Concomitant]
     Active Substance: FENTANYL
     Indication: BACK PAIN
     Dosage: 12 UG/H
     Route: 065
  13. KALCIPOS [Concomitant]
     Active Substance: CALCIUM CARBONATE
     Route: 065
  14. FRAGMIN [Concomitant]
     Active Substance: DALTEPARIN SODIUM
     Route: 065
     Dates: start: 20161202
  15. PANTOZOL [Concomitant]
     Active Substance: PANTOPRAZOLE SODIUM
     Route: 065
  16. MACROGOL [Concomitant]
     Active Substance: POLYETHYLENE GLYCOLS
     Route: 065
  17. PARAGOL N [Concomitant]
     Route: 065

REACTIONS (5)
  - Leukocytosis [Unknown]
  - Neutrophilia [Unknown]
  - Coma scale abnormal [Recovered/Resolved]
  - Somnolence [Recovered/Resolved]
  - C-reactive protein increased [Unknown]

NARRATIVE: CASE EVENT DATE: 20161206
